FAERS Safety Report 16761502 (Version 10)
Quarter: 2024Q2

REPORT INFORMATION
  Report Type: Report from Study
  Country: US (occurrence: US)
  Receive Date: 20190830
  Receipt Date: 20240424
  Transmission Date: 20240716
  Serious: Yes (Hospitalization, Other)
  Sender: FDA-Public Use
  Company Number: US-TAKEDA-2019TUS050190

PATIENT
  Age: 71 Year
  Sex: Female

DRUGS (3)
  1. IXAZOMIB [Suspect]
     Active Substance: IXAZOMIB
     Indication: Plasma cell myeloma
     Dosage: 4 MILLIGRAM
     Route: 048
     Dates: start: 20190805
  2. IXAZOMIB [Suspect]
     Active Substance: IXAZOMIB
     Dosage: 4 MILLIGRAM
     Route: 048
  3. IXAZOMIB [Suspect]
     Active Substance: IXAZOMIB
     Dosage: 4 MILLIGRAM, 1/WEEK
     Route: 048

REACTIONS (12)
  - Plasma cell myeloma [Unknown]
  - Fatigue [Unknown]
  - Dyspnoea [Unknown]
  - Cataract [Unknown]
  - Hot flush [Unknown]
  - Balance disorder [Unknown]
  - Somnolence [Unknown]
  - Diarrhoea [Unknown]
  - Vomiting [Unknown]
  - Musculoskeletal discomfort [Unknown]
  - Oral disorder [Unknown]
  - Product dose omission issue [Unknown]

NARRATIVE: CASE EVENT DATE: 20230911
